FAERS Safety Report 4455489-9 (Version None)
Quarter: 2004Q3

REPORT INFORMATION
  Report Type: 
  Country: None (occurrence: None)
  Receive Date: 20040917
  Receipt Date: 20040901
  Transmission Date: 20050211
  Serious: Yes (Hospitalization, Other)
  Sender: FDA-Public Use
  Company Number: 172315

PATIENT
  Age: 73 Year
  Sex: Female

DRUGS (8)
  1. AVONEX [Suspect]
     Indication: MULTIPLE SCLEROSIS
     Dosage: 30 MCG QW IM
     Route: 030
     Dates: start: 19990101, end: 20030730
  2. AVONEX [Suspect]
     Indication: MULTIPLE SCLEROSIS
     Dosage: 30 MCG QW IM
     Route: 030
     Dates: start: 20030829
  3. ASPIRIN [Concomitant]
  4. K-DUR 10 [Concomitant]
  5. LOPRESSOR [Concomitant]
  6. LASIX [Concomitant]
  7. PLAVIX [Concomitant]
  8. INVESTIGATION DRUG FOR CARDIAC PROBLEMS [Concomitant]

REACTIONS (4)
  - ATRIOVENTRICULAR BLOCK [None]
  - MULTIPLE SCLEROSIS [None]
  - MYOCARDIAL INFARCTION [None]
  - URINARY TRACT INFECTION [None]
